FAERS Safety Report 10214268 (Version 1)
Quarter: 2014Q2

REPORT INFORMATION
  Report Type: Spontaneous
  Country: US (occurrence: None)
  Receive Date: 20140602
  Receipt Date: 20140602
  Transmission Date: 20141212
  Serious: Yes (Life-Threatening)
  Sender: FDA-Public Use
  Company Number: None

PATIENT
  Age: 97 Year
  Sex: Female
  Weight: 41.7 kg

DRUGS (17)
  1. WARFARIN [Suspect]
     Indication: THROMBOSIS
     Route: 048
  2. WARFARIN [Suspect]
     Indication: ATRIAL FIBRILLATION
     Route: 048
  3. ACETAMINOPHEN [Concomitant]
  4. ALBUTEROL [Concomitant]
  5. ASPIRIN [Concomitant]
  6. OCUVITE [Concomitant]
  7. DOGOXIN [Concomitant]
  8. FUROSEMIDE [Concomitant]
  9. GLIPIZIDE XL [Concomitant]
  10. LEVOTHYROXINE [Concomitant]
  11. KLOR-CON [Concomitant]
  12. VITAMIN D [Concomitant]
  13. VITAMIN B-12 [Concomitant]
  14. OCUVITE [Concomitant]
  15. CRANBERRY [Concomitant]
  16. CALCIUM CARBONATE [Concomitant]
  17. CALIUM WITH VITAMIN C [Concomitant]

REACTIONS (4)
  - Dyspnoea [None]
  - Lethargy [None]
  - Mental status changes [None]
  - International normalised ratio increased [None]
